FAERS Safety Report 9671273 (Version 1)
Quarter: 2013Q4

REPORT INFORMATION
  Report Type: Spontaneous
  Country: CH (occurrence: CH)
  Receive Date: 20131106
  Receipt Date: 20131106
  Transmission Date: 20140711
  Serious: Yes (Other)
  Sender: FDA-Public Use
  Company Number: CH-ELI_LILLY_AND_COMPANY-CH201310008159

PATIENT
  Age: 55 Year
  Sex: Female

DRUGS (3)
  1. ALIMTA [Suspect]
     Indication: ADENOCARCINOMA
     Route: 042
  2. CISPLATIN [Suspect]
     Indication: ADENOCARCINOMA
     Route: 042
  3. CRIZOTINIB [Suspect]
     Indication: ADENOCARCINOMA
     Route: 065

REACTIONS (3)
  - Neoplasm recurrence [Unknown]
  - Malignant neoplasm progression [Unknown]
  - Malignant neoplasm progression [Unknown]
